FAERS Safety Report 14151898 (Version 1)
Quarter: 2017Q4

REPORT INFORMATION
  Report Type: Spontaneous
  Country: US (occurrence: US)
  Receive Date: 20171101
  Receipt Date: 20171101
  Transmission Date: 20180321
  Serious: Yes (Other)
  Sender: FDA-Public Use
  Company Number: None

PATIENT
  Age: 80 Year
  Sex: Female
  Weight: 49.5 kg

DRUGS (10)
  1. AMLODIPINE [Concomitant]
     Active Substance: AMLODIPINE BESYLATE
  2. VIT. D [Concomitant]
  3. FLONASE [Concomitant]
     Active Substance: FLUTICASONE PROPIONATE
  4. ALEVE [Concomitant]
     Active Substance: NAPROXEN SODIUM
  5. ROSUVASTAIN CALCIUM 5MG [Suspect]
     Active Substance: ROSUVASTATIN CALCIUM
     Indication: BLOOD CHOLESTEROL INCREASED
     Dosage: ?          QUANTITY:90 TABLET(S);?
     Route: 048
     Dates: start: 20171026, end: 20171030
  6. ASHAWAGANDA [Concomitant]
  7. ASPIRIN. [Concomitant]
     Active Substance: ASPIRIN
  8. GOTU KOLA [Concomitant]
     Active Substance: GOTU KOLA
  9. PLAVIX [Concomitant]
     Active Substance: CLOPIDOGREL BISULFATE
  10. FISH OIL [Concomitant]
     Active Substance: FISH OIL

REACTIONS (8)
  - Joint swelling [None]
  - Headache [None]
  - Urine odour abnormal [None]
  - Peripheral swelling [None]
  - Pain [None]
  - Fatigue [None]
  - Urine output decreased [None]
  - Heart rate increased [None]

NARRATIVE: CASE EVENT DATE: 20171028
